FAERS Safety Report 23336155 (Version 1)
Quarter: 2023Q4

REPORT INFORMATION
  Report Type: Report from Study
  Country: CA (occurrence: None)
  Receive Date: 20231225
  Receipt Date: 20231225
  Transmission Date: 20240110
  Serious: Yes (Other)
  Sender: FDA-Public Use
  Company Number: 2023A290889

PATIENT
  Sex: Female

DRUGS (5)
  1. TEZSPIRE [Suspect]
     Active Substance: TEZEPELUMAB-EKKO
     Indication: Asthma
     Dosage: 210.0MG UNKNOWN
     Route: 058
     Dates: start: 20230607
  2. PREDNISONE [Concomitant]
     Active Substance: PREDNISONE
     Dosage: 10.0MG UNKNOWN
  3. ENERZAIRE [Concomitant]
     Dosage: 150.0UG UNKNOWN
  4. ALBUTEROL [Concomitant]
     Active Substance: ALBUTEROL
     Dosage: 100.0UG UNKNOWN
  5. ADVAIR HFA [Concomitant]
     Active Substance: FLUTICASONE PROPIONATE\SALMETEROL XINAFOATE
     Dosage: 500.0UG UNKNOWN

REACTIONS (4)
  - Blindness [Unknown]
  - Headache [Unknown]
  - Migraine with aura [Unknown]
  - Speech disorder [Unknown]
